FAERS Safety Report 13121665 (Version 1)
Quarter: 2017Q1

REPORT INFORMATION
  Report Type: Spontaneous
  Country: JP (occurrence: JP)
  Receive Date: 20170117
  Receipt Date: 20170117
  Transmission Date: 20170428
  Serious: Yes (Other)
  Sender: FDA-Public Use
  Company Number: JP-PFIZER INC-2017018233

PATIENT
  Sex: Male

DRUGS (3)
  1. HALCION [Suspect]
     Active Substance: TRIAZOLAM
     Dosage: 0.25 MG, DAILY
     Route: 048
  2. ICLUSIG [Suspect]
     Active Substance: PONATINIB
     Indication: CHRONIC MYELOID LEUKAEMIA
     Dosage: 45 MG, DAILY
     Route: 048
     Dates: start: 20161216, end: 20170105
  3. ICLUSIG [Suspect]
     Active Substance: PONATINIB
     Dosage: 30 MG, DAILY
     Route: 048
     Dates: start: 20170105

REACTIONS (1)
  - Loss of consciousness [Recovered/Resolved]

NARRATIVE: CASE EVENT DATE: 20170105
